FAERS Safety Report 21264283 (Version 4)
Quarter: 2022Q4

REPORT INFORMATION
  Report Type: Spontaneous
  Country: US (occurrence: US)
  Receive Date: 20220829
  Receipt Date: 20221025
  Transmission Date: 20230112
  Serious: No
  Sender: FDA-Public Use
  Company Number: US-PFIZER INC-202201066777

PATIENT
  Age: 4 Year
  Sex: Female
  Weight: 19.96 kg

DRUGS (5)
  1. GENOTROPIN [Suspect]
     Active Substance: SOMATROPIN
     Indication: Growth hormone deficiency
     Dosage: EVERY NIGHT
  2. GENOTROPIN [Suspect]
     Active Substance: SOMATROPIN
     Indication: Hypothalamo-pituitary disorder
  3. MELATONIN [Concomitant]
     Active Substance: MELATONIN
     Indication: Blindness
     Dosage: UNK, (TAKES 3 OR 4 TABLETS, NORMALLY TRY TO TAKE EVERY NIGHT)
  4. MELATONIN [Concomitant]
     Active Substance: MELATONIN
     Indication: Melatonin deficiency
  5. MELATONIN [Concomitant]
     Active Substance: MELATONIN
     Indication: Sleep disorder

REACTIONS (2)
  - Drug dose omission by device [Unknown]
  - Device use issue [Unknown]
